FAERS Safety Report 7901791-5 (Version None)
Quarter: 2011Q4

REPORT INFORMATION
  Report Type: 
  Country: None (occurrence: None)
  Receive Date: 20111108
  Receipt Date: 20111104
  Transmission Date: 20120403
  Serious: Yes (Hospitalization, Other)
  Sender: FDA-Public Use
  Company Number: FR-PFIZER INC-2011271286

PATIENT
  Age: 62 Year
  Sex: Female

DRUGS (2)
  1. LYRICA [Suspect]
     Dosage: 100 MG, 3X/DAY
  2. KETOPROFEN [Concomitant]

REACTIONS (7)
  - DIPLOPIA [None]
  - VERTIGO [None]
  - IMPAIRED DRIVING ABILITY [None]
  - VISION BLURRED [None]
  - OPHTHALMOPLEGIA [None]
  - DYSGRAPHIA [None]
  - METAMORPHOPSIA [None]
